FAERS Safety Report 9426420 (Version 1)
Quarter: 2013Q3

REPORT INFORMATION
  Report Type: Spontaneous
  Country: US (occurrence: US)
  Receive Date: 20130730
  Receipt Date: 20130730
  Transmission Date: 20140515
  Serious: Yes (Hospitalization, Other)
  Sender: FDA-Public Use
  Company Number: US-TEVA-421491USA

PATIENT
  Age: 39 Year
  Sex: Male

DRUGS (1)
  1. COPAXONE [Suspect]
     Indication: MULTIPLE SCLEROSIS
     Dates: start: 20130604

REACTIONS (2)
  - Altered state of consciousness [Not Recovered/Not Resolved]
  - Lethargy [Not Recovered/Not Resolved]
